FAERS Safety Report 6902265-0 (Version None)
Quarter: 2010Q3

REPORT INFORMATION
  Report Type: 
  Country: None (occurrence: None)
  Receive Date: 20100803
  Receipt Date: 20080507
  Transmission Date: 20110219
  Serious: No
  Sender: FDA-Public Use
  Company Number: US-PFIZER INC-2008015414

PATIENT
  Sex: Female
  Weight: 90.7 kg

DRUGS (7)
  1. LYRICA [Suspect]
     Indication: FIBROMYALGIA
     Dates: start: 20080213
  2. BYETTA [Concomitant]
     Indication: DIABETES MELLITUS
  3. DYAZIDE [Concomitant]
  4. DICYCLOMINE [Concomitant]
  5. LEVOTHYROXINE [Concomitant]
     Indication: THYROID DISORDER
  6. LEVOTHYROXINE [Concomitant]
  7. LAMICTAL [Concomitant]

REACTIONS (1)
  - CHROMATURIA [None]
